FAERS Safety Report 11129736 (Version 1)
Quarter: 2015Q2

REPORT INFORMATION
  Report Type: Spontaneous
  Country: JP (occurrence: JP)
  Receive Date: 20150521
  Receipt Date: 20150521
  Transmission Date: 20150821
  Serious: Yes (Hospitalization, Other)
  Sender: FDA-Public Use
  Company Number: JP-MPIJNJ-2014JNJ003798

PATIENT

DRUGS (18)
  1. ACETAMINOPHEN. [Concomitant]
     Active Substance: ACETAMINOPHEN
     Dosage: 1 MG, QD
     Route: 048
     Dates: start: 20140312, end: 20140512
  2. LOXONIN [Concomitant]
     Active Substance: LOXOPROFEN SODIUM
     Dosage: 60 MG, UNK
     Route: 048
     Dates: start: 20140520, end: 20140526
  3. SODIUM GUALENATE [Concomitant]
     Active Substance: SODIUM GUALENATE
     Dosage: UNK
     Route: 049
     Dates: start: 20140526
  4. WHITE PETROLATUM [Concomitant]
     Active Substance: PETROLATUM
     Indication: PROPHYLAXIS
     Dosage: UNK
     Route: 061
     Dates: start: 20140528
  5. TAKEPRON [Concomitant]
     Active Substance: LANSOPRAZOLE
     Indication: PROPHYLAXIS AGAINST GASTROINTESTINAL ULCER
     Dosage: 30 MG, QD
     Route: 048
     Dates: start: 20140528
  6. VELCADE [Suspect]
     Active Substance: BORTEZOMIB
     Dosage: 1.3 MG/M2, UNK
     Route: 058
     Dates: start: 20140515, end: 20140515
  7. BREDININ [Concomitant]
     Active Substance: MIZORIBINE
     Dosage: 150 MG, QD
     Route: 048
     Dates: start: 20140403, end: 20140525
  8. PREDNISOLONE. [Concomitant]
     Active Substance: PREDNISOLONE
     Indication: SYSTEMIC LUPUS ERYTHEMATOSUS
     Dosage: 20 MG, QD
     Route: 048
     Dates: start: 20140312
  9. LOXONIN [Concomitant]
     Active Substance: LOXOPROFEN SODIUM
     Dosage: 120 MG, QD
     Dates: start: 20140523, end: 20140526
  10. CALONAL [Concomitant]
     Active Substance: ACETAMINOPHEN
     Dosage: 200 MG, UNK
     Dates: start: 20140410
  11. PREGABALIN. [Concomitant]
     Active Substance: PREGABALIN
     Dosage: 25 MG, UNK
     Route: 048
     Dates: start: 20140529, end: 20140529
  12. VELCADE [Suspect]
     Active Substance: BORTEZOMIB
     Indication: SYSTEMIC LUPUS ERYTHEMATOSUS
     Dosage: 1.3 MG/M2, QD
     Route: 058
     Dates: start: 20140519
  13. TAKEPRON [Concomitant]
     Active Substance: LANSOPRAZOLE
     Dosage: 30 UNK, UNK
     Route: 048
     Dates: start: 20140523
  14. CALONAL [Concomitant]
     Active Substance: ACETAMINOPHEN
     Dosage: 400 MG, UNK
     Route: 048
     Dates: start: 20140519, end: 20140520
  15. VICCLOX                            /00587301/ [Concomitant]
     Active Substance: ACYCLOVIR SODIUM
     Dosage: 200 MG, QD
     Route: 048
     Dates: start: 20140513, end: 20140522
  16. VELCADE [Suspect]
     Active Substance: BORTEZOMIB
     Dosage: 1.3 MG/M2, UNK
     Route: 058
     Dates: start: 20140512, end: 20140512
  17. LACTEC                             /00490001/ [Concomitant]
     Dosage: 500 ML, UNK
     Route: 041
     Dates: start: 20140519, end: 20140523
  18. PRIMPERAN [Concomitant]
     Active Substance: METOCLOPRAMIDE HYDROCHLORIDE
     Dosage: 10 MG, UNK
     Route: 042
     Dates: start: 20140520, end: 20140523

REACTIONS (15)
  - Diarrhoea [Recovered/Resolved]
  - Pancytopenia [Recovered/Resolved]
  - Liver disorder [Not Recovered/Not Resolved]
  - Headache [Recovered/Resolved]
  - Product use issue [Unknown]
  - Eyelid oedema [Recovered/Resolved]
  - Blood creatine phosphokinase increased [Not Recovered/Not Resolved]
  - Stomatitis [Not Recovered/Not Resolved]
  - Pneumonia [Recovered/Resolved]
  - Vomiting [Recovered/Resolved]
  - Pyrexia [Recovered/Resolved]
  - Injection site reaction [Recovered/Resolved]
  - Nausea [Recovered/Resolved]
  - Neuropathy peripheral [Not Recovered/Not Resolved]
  - Erythema [Not Recovered/Not Resolved]

NARRATIVE: CASE EVENT DATE: 20140516
